FAERS Safety Report 5123129-1 (Version None)
Quarter: 2006Q4

REPORT INFORMATION
  Report Type: 
  Country: None (occurrence: None)
  Receive Date: 20061005
  Receipt Date: 20061002
  Transmission Date: 20070319
  Serious: Yes (Death, Hospitalization)
  Sender: FDA-Public Use
  Company Number: 163-21880-06080278

PATIENT
  Age: 41 Year
  Sex: Male

DRUGS (1)
  1. REVLIMID [Suspect]
     Indication: MULTIPLE MYELOMA
     Dosage: 25 MG, 5 IN 1 D, ORAL
     Route: 048
     Dates: start: 20060601, end: 20060801

REACTIONS (2)
  - DIABETIC COMPLICATION [None]
  - SHOCK [None]
